FAERS Safety Report 20170151 (Version 3)
Quarter: 2022Q1

REPORT INFORMATION
  Report Type: Report from Study
  Country: MA (occurrence: MA)
  Receive Date: 20211210
  Receipt Date: 20220124
  Transmission Date: 20220423
  Serious: Yes (Hospitalization)
  Sender: FDA-Public Use
  Company Number: MA-NOVARTISPH-NVSC2021MA277849

PATIENT
  Age: 46 Year
  Sex: Female

DRUGS (2)
  1. KISQALI [Suspect]
     Active Substance: RIBOCICLIB
     Indication: Breast cancer
     Dosage: 200 MG, TID
     Route: 048
     Dates: end: 202109
  2. KISQALI [Suspect]
     Active Substance: RIBOCICLIB
     Dosage: UNK
     Route: 065
     Dates: start: 202112

REACTIONS (9)
  - Decreased immune responsiveness [Recovering/Resolving]
  - Thrombosis [Recovering/Resolving]
  - Platelet count decreased [Recovering/Resolving]
  - Illness [Unknown]
  - COVID-19 [Unknown]
  - Back disorder [Unknown]
  - Nerve compression [Unknown]
  - Movement disorder [Unknown]
  - Fatigue [Unknown]

NARRATIVE: CASE EVENT DATE: 20210929
